FAERS Safety Report 20790018 (Version 2)
Quarter: 2022Q2

REPORT INFORMATION
  Report Type: Spontaneous
  Country: US (occurrence: US)
  Receive Date: 20220505
  Receipt Date: 20220524
  Transmission Date: 20220721
  Serious: No
  Sender: FDA-Public Use
  Company Number: US-PFIZER INC-202200650690

PATIENT
  Age: 75 Year
  Sex: Female
  Weight: 83.01 kg

DRUGS (1)
  1. SERTRALINE HYDROCHLORIDE [Suspect]
     Active Substance: SERTRALINE HYDROCHLORIDE
     Indication: Anxiety
     Dosage: 0.25 ML, 3X/DAY
     Route: 048
     Dates: start: 20220222

REACTIONS (7)
  - Dyspepsia [Not Recovered/Not Resolved]
  - Chills [Unknown]
  - Abdominal pain upper [Not Recovered/Not Resolved]
  - Nasopharyngitis [Unknown]
  - Decreased appetite [Unknown]
  - Dry mouth [Unknown]
  - Weight decreased [Unknown]
